FAERS Safety Report 24711330 (Version 1)
Quarter: 2024Q4

REPORT INFORMATION
  Report Type: Spontaneous
  Country: US (occurrence: None)
  Receive Date: 20241207
  Receipt Date: 20241207
  Transmission Date: 20250115
  Serious: Yes (Hospitalization)
  Sender: Public
  Company Number: None

PATIENT
  Sex: Female

DRUGS (1)
  1. BOSENTAN [Suspect]
     Active Substance: BOSENTAN
     Dosage: FREQUENCY : TWICE A DAY;?
     Route: 048
     Dates: start: 201710

REACTIONS (2)
  - Fall [None]
  - Rib fracture [None]
